FAERS Safety Report 6087348-2 (Version None)
Quarter: 2009Q1

REPORT INFORMATION
  Report Type: 
  Country: None (occurrence: None)
  Receive Date: 20090223
  Receipt Date: 20090218
  Transmission Date: 20090719
  Serious: Yes (Other)
  Sender: FDA-Public Use
  Company Number: B0557393A

PATIENT
  Age: 10 Year
  Sex: Female
  Weight: 29.4 kg

DRUGS (3)
  1. RELENZA [Suspect]
     Indication: INFLUENZA
     Dosage: 10MG TWICE PER DAY
     Route: 055
     Dates: start: 20090129, end: 20090130
  2. ASVERIN [Concomitant]
     Route: 048
     Dates: start: 20090129
  3. MUCODYNE [Concomitant]
     Route: 048
     Dates: start: 20090129

REACTIONS (2)
  - ABNORMAL BEHAVIOUR [None]
  - DEPRESSED LEVEL OF CONSCIOUSNESS [None]
